FAERS Safety Report 9239026 (Version 2)
Quarter: 2013Q2

REPORT INFORMATION
  Report Type: Spontaneous
  Country: CZ (occurrence: CZ)
  Receive Date: 20130418
  Receipt Date: 20130424
  Transmission Date: 20140414
  Serious: Yes (Death, Life-Threatening, Hospitalization, Disabling, Other)
  Sender: FDA-Public Use
  Company Number: CZ-B.I. PHARMACEUTICALS,INC./RIDGEFIELD-2013-AP-00306AP

PATIENT
  Age: 72 Year
  Sex: Male
  Weight: 170 kg

DRUGS (13)
  1. PRADAXA [Suspect]
     Indication: CEREBROVASCULAR ACCIDENT PROPHYLAXIS
     Dosage: 150 MG
     Route: 048
     Dates: start: 201210
  2. PRADAXA [Suspect]
     Indication: ATRIAL FIBRILLATION
  3. OXYGENOTHERAPY [Concomitant]
     Indication: ASTHMA
     Route: 055
  4. RAMIL [Concomitant]
     Dosage: 2.5 MG
     Route: 048
  5. FUROSESE [Concomitant]
     Dosage: 125 MG
     Route: 048
  6. VEROSPIRON [Concomitant]
     Dosage: 25 MG
     Route: 048
  7. TORVACARD [Concomitant]
     Dosage: 20 MG
     Route: 048
  8. DIAZEPAM [Concomitant]
     Dosage: 5 MG
     Route: 048
  9. MIXTARD 50HM [Concomitant]
     Indication: DIABETES MELLITUS
     Dosage: 12-12-10 IU
     Route: 058
  10. LACTULOSA SOL. [Concomitant]
     Dosage: 10 ML
     Route: 048
  11. HELICID [Concomitant]
     Dosage: 20 MG
     Route: 048
  12. NOVALGIN [Concomitant]
  13. MAALOX [Concomitant]

REACTIONS (31)
  - Cardiac failure [Fatal]
  - Epistaxis [Fatal]
  - Cardiogenic shock [Fatal]
  - Respiratory failure [Unknown]
  - Inflammation [Unknown]
  - Dyspnoea [Unknown]
  - Cardiopulmonary failure [Unknown]
  - Cardiac failure [Unknown]
  - Varicose ulceration [Unknown]
  - Erysipelas [Unknown]
  - Urinary tract infection [Unknown]
  - Respiratory tract infection [Unknown]
  - Renal failure chronic [Unknown]
  - General physical health deterioration [Unknown]
  - Pulmonary congestion [Unknown]
  - Pulmonary oedema [Unknown]
  - Erysipelas [Unknown]
  - Immobile [Unknown]
  - Cardiac failure [Unknown]
  - Pharyngeal haemorrhage [Unknown]
  - Haematuria [Unknown]
  - Drug level increased [Unknown]
  - Shock haemorrhagic [Unknown]
  - Multi-organ failure [Unknown]
  - Azotaemia [Unknown]
  - Oliguria [Unknown]
  - Cardiac failure [Unknown]
  - Urosepsis [Unknown]
  - Pulmonary sepsis [Unknown]
  - Skin infection [Unknown]
  - Capillary leak syndrome [Unknown]
